FAERS Safety Report 7614589-2 (Version None)
Quarter: 2011Q3

REPORT INFORMATION
  Report Type: 
  Country: None (occurrence: None)
  Receive Date: 20110708
  Receipt Date: 20110630
  Transmission Date: 20111222
  Serious: Yes (Hospitalization)
  Sender: FDA-Public Use
  Company Number: AXC-2011-000255

PATIENT
  Age: 53 Year
  Sex: Female

DRUGS (10)
  1. FERROUS SULFATE TAB [Suspect]
     Indication: PRODUCT USED FOR UNKNOWN INDICATION
     Dosage: 325 MG, QD, ORAL
     Route: 048
     Dates: end: 20090124
  2. SPIRONOLACTONE [Suspect]
     Indication: PRODUCT USED FOR UNKNOWN INDICATION
     Dosage: 100 MG, BID, ORAL
     Route: 048
     Dates: end: 20090124
  3. LACTULOSE [Suspect]
     Indication: PRODUCT USED FOR UNKNOWN INDICATION
     Dosage: 10 MG, BID, ORAL
     Route: 048
     Dates: end: 20090124
  4. OMEPRAZOLE [Suspect]
     Indication: PRODUCT USED FOR UNKNOWN INDICATION
     Dosage: 20 MG, BID, ORAL
     Route: 048
     Dates: end: 20090124
  5. GABAPENTIN [Suspect]
     Indication: PRODUCT USED FOR UNKNOWN INDICATION
     Dosage: 700 MG, QD, ORAL
     Route: 048
     Dates: end: 20090124
  6. TRAZODONE HCL [Suspect]
     Indication: PRODUCT USED FOR UNKNOWN INDICATION
     Dosage: 50 MG, HS, ORAL
     Route: 048
     Dates: end: 20090124
  7. URSODIOL [Suspect]
     Indication: PRODUCT USED FOR UNKNOWN INDICATION
     Dosage: 300 MG, QD, ORAL ; 300 MG, QD, ORAL
     Route: 048
     Dates: end: 20090124
  8. URSODIOL [Suspect]
     Indication: PRODUCT USED FOR UNKNOWN INDICATION
     Dosage: 300 MG, QD, ORAL ; 300 MG, QD, ORAL
     Route: 048
     Dates: start: 20090101
  9. NADOLOL [Suspect]
     Indication: PRODUCT USED FOR UNKNOWN INDICATION
     Dosage: 40 MG,QD, ORAL
     Route: 048
     Dates: end: 20090124
  10. CITALOPRAM HYDROBROMIDE [Suspect]
     Indication: PRODUCT USED FOR UNKNOWN INDICATION
     Dosage: 10 MG, QD, ORAL
     Route: 048
     Dates: end: 20090124

REACTIONS (4)
  - MELAENA [None]
  - HAEMATEMESIS [None]
  - ABDOMINAL PAIN [None]
  - OESOPHAGEAL VARICES HAEMORRHAGE [None]
